FAERS Safety Report 6251737-3 (Version None)
Quarter: 2009Q2

REPORT INFORMATION
  Report Type: 
  Country: None (occurrence: None)
  Receive Date: 20090630
  Receipt Date: 20090618
  Transmission Date: 20091009
  Serious: Yes (Other)
  Sender: FDA-Public Use
  Company Number: PHHY2009BR24317

PATIENT
  Sex: Male

DRUGS (2)
  1. RITALIN LA [Suspect]
     Indication: ATTENTION DEFICIT/HYPERACTIVITY DISORDER
     Dosage: 20 MG
     Dates: start: 20090301
  2. RITALIN LA [Suspect]
     Dosage: 30 MG 1 TABLET DAILY
     Route: 048
     Dates: start: 20090615, end: 20090618

REACTIONS (8)
  - DEPRESSED MOOD [None]
  - DEPRESSION [None]
  - FATIGUE [None]
  - INAPPROPRIATE AFFECT [None]
  - INSOMNIA [None]
  - MALAISE [None]
  - SOMNOLENCE [None]
  - TREMOR [None]
